FAERS Safety Report 5801053-6 (Version None)
Quarter: 2008Q3

REPORT INFORMATION
  Report Type: 
  Country: None (occurrence: None)
  Receive Date: 20080704
  Receipt Date: 20080626
  Transmission Date: 20090109
  Serious: Yes (Hospitalization)
  Sender: FDA-Public Use
  Company Number: US-ELI_LILLY_AND_COMPANY-2006PV022868

PATIENT
  Sex: Female
  Weight: 95.71 kg

DRUGS (11)
  1. EXENATIDE [Suspect]
     Indication: TYPE 2 DIABETES MELLITUS
     Dosage: 10 UG, 2/D
     Route: 058
     Dates: start: 20060918
  2. EXENATIDE [Suspect]
     Dosage: 5 UG, 2/D
     Route: 058
     Dates: start: 20060701, end: 20060901
  3. EXENATIDE [Suspect]
     Dosage: 5 UG, 2/D
     Route: 058
     Dates: start: 20080622
  4. GLUCOTROL [Concomitant]
     Dosage: 10 MG, EACH MORNING
     Route: 048
     Dates: start: 20010101, end: 20080501
  5. GLUCOTROL [Concomitant]
     Dosage: 5 MG, EACH MORNING
     Route: 048
     Dates: start: 20010101, end: 20060101
  6. GLUCOPHAGE [Concomitant]
     Dosage: 1000 MG, 4/D
  7. ATENOLOL [Concomitant]
     Dosage: 100 MG, 2/D
  8. ATIVAN [Concomitant]
     Dosage: UNK, 3/D
  9. ASPIRIN [Concomitant]
     Dosage: 81 MG, 2/D
  10. VASOTEC [Concomitant]
     Dosage: 0.5 D/F, DAILY (1/D)
  11. OXYGEN [Concomitant]
     Indication: SLEEP APNOEA SYNDROME
     Dosage: 2 LITER, EACH EVENING

REACTIONS (6)
  - BLOOD GLUCOSE INCREASED [None]
  - CARDIAC OPERATION [None]
  - DYSPNOEA [None]
  - HYPOACUSIS [None]
  - INJECTION SITE HAEMATOMA [None]
  - MEDICATION ERROR [None]
